FAERS Safety Report 4561161-7 (Version None)
Quarter: 2005Q1

REPORT INFORMATION
  Report Type: 
  Country: None (occurrence: None)
  Receive Date: 20050126
  Receipt Date: 20050114
  Transmission Date: 20050727
  Serious: Yes (Life-Threatening)
  Sender: FDA-Public Use
  Company Number: CH-BRISTOL-MYERS SQUIBB COMPANY-12824678

PATIENT
  Age: 71 Year
  Sex: Male

DRUGS (4)
  1. REYATAZ [Suspect]
     Indication: HIV INFECTION
     Route: 048
     Dates: start: 20040113
  2. SOTALOL HCL [Concomitant]
  3. ASPIRIN [Concomitant]
  4. INSULIN [Concomitant]

REACTIONS (1)
  - HYPOCHROMIC ANAEMIA [None]
